FAERS Safety Report 7295090-5 (Version None)
Quarter: 2011Q1

REPORT INFORMATION
  Report Type: 
  Country: None (occurrence: None)
  Receive Date: 20110216
  Receipt Date: 20110208
  Transmission Date: 20110831
  Serious: Yes (Other)
  Sender: FDA-Public Use
  Company Number: US-JNJFOC-20110202817

PATIENT
  Sex: Male
  Weight: 68.04 kg

DRUGS (2)
  1. REMICADE [Suspect]
     Indication: COLITIS ULCERATIVE
     Dosage: ON INFLIXIMAB FOR ABOUT 1 YEAR
     Route: 042
  2. PREDNISONE [Concomitant]
     Indication: COLITIS ULCERATIVE

REACTIONS (3)
  - HEART RATE INCREASED [None]
  - HOT FLUSH [None]
  - CHEST PAIN [None]
